FAERS Safety Report 18301765 (Version 1)
Quarter: 2020Q3

REPORT INFORMATION
  Report Type: Report from Study
  Country: None (occurrence: US)
  Receive Date: 20200923
  Receipt Date: 20200923
  Transmission Date: 20201103
  Serious: Yes (Other)
  Sender: FDA-Public Use
  Company Number: US-ABBVIE-20K-163-3570217-00

PATIENT
  Age: 26 Year
  Sex: Male
  Weight: 90.8 kg

DRUGS (3)
  1. HUMIRA [Suspect]
     Active Substance: ADALIMUMAB
     Indication: CROHN^S DISEASE
     Route: 058
     Dates: start: 2017, end: 2019
  2. BUDESONIDE. [Concomitant]
     Active Substance: BUDESONIDE
     Indication: INFLAMMATION
  3. HUMIRA [Suspect]
     Active Substance: ADALIMUMAB
     Route: 058
     Dates: start: 202005

REACTIONS (1)
  - Large intestinal obstruction [Recovered/Resolved]

NARRATIVE: CASE EVENT DATE: 202003
